FAERS Safety Report 6207160-0 (Version None)
Quarter: 2009Q2

REPORT INFORMATION
  Report Type: 
  Country: None (occurrence: None)
  Receive Date: 20090528
  Receipt Date: 20090121
  Transmission Date: 20091009
  Serious: Yes (Hospitalization)
  Sender: FDA-Public Use
  Company Number: IE-PFIZER INC-2008155895

PATIENT

DRUGS (4)
  1. METHYLPREDNISOLONE AND METHYLPREDNISOLONE ACETATE AND METHYLPREDNISOLO [Suspect]
     Indication: SCLERODERMA
     Dosage: 30 MG/KG, 1X/DAY
  2. METHOTREXATE SODIUM [Suspect]
     Dosage: 0.3 MG/KG, WEEKLY
  3. D-PENICILLAMINE [Suspect]
  4. FOLIC ACID [Concomitant]

REACTIONS (1)
  - DYSMORPHISM [None]
